FAERS Safety Report 24257033 (Version 1)
Quarter: 2024Q3

REPORT INFORMATION
  Report Type: Spontaneous
  Country: GB (occurrence: GB)
  Receive Date: 20240828
  Receipt Date: 20240828
  Transmission Date: 20241017
  Serious: Yes (Other)
  Sender: TEVA
  Company Number: GB-SANOFI-02175721

PATIENT
  Sex: Male

DRUGS (2)
  1. PALIPERIDONE [Suspect]
     Active Substance: PALIPERIDONE
     Dosage: UNK, QM, STRENGTH: 150 MG/1.5ML
     Route: 065
  2. EPILIM [Suspect]
     Active Substance: VALPROATE SODIUM
     Route: 065

REACTIONS (2)
  - Suicidal ideation [Unknown]
  - Mood swings [Unknown]
